FAERS Safety Report 22322157 (Version 1)
Quarter: 2023Q2

REPORT INFORMATION
  Report Type: Spontaneous
  Country: US (occurrence: None)
  Receive Date: 20230516
  Receipt Date: 20230516
  Transmission Date: 20230721
  Serious: No
  Sender: FDA-Public Use
  Company Number: US-Hikma Pharmaceuticals USA Inc.-US-H14001-23-00430

PATIENT
  Age: 50 Year
  Sex: Female

DRUGS (3)
  1. PREDNISONE [Suspect]
     Active Substance: PREDNISONE
     Indication: Product used for unknown indication
     Route: 065
     Dates: end: 202211
  2. PREDNISONE [Suspect]
     Active Substance: PREDNISONE
     Route: 065
  3. TAVNEOS [Suspect]
     Active Substance: AVACOPAN
     Indication: Product used for unknown indication
     Route: 048
     Dates: start: 20221101

REACTIONS (4)
  - Arthralgia [Not Recovered/Not Resolved]
  - Nausea [Recovered/Resolved]
  - Fatigue [Not Recovered/Not Resolved]
  - Adverse event [Recovered/Resolved]

NARRATIVE: CASE EVENT DATE: 20221101
